FAERS Safety Report 17495683 (Version 2)
Quarter: 2020Q2

REPORT INFORMATION
  Report Type: Spontaneous
  Country: US (occurrence: US)
  Receive Date: 20200303
  Receipt Date: 20200423
  Transmission Date: 20200713
  Serious: No
  Sender: FDA-Public Use
  Company Number: US-PURDUE-USA-2020-0149839

PATIENT
  Age: 10 Year
  Sex: Male

DRUGS (1)
  1. ADHANSIA XR [Suspect]
     Active Substance: METHYLPHENIDATE HYDROCHLORIDE
     Indication: PRODUCT USED FOR UNKNOWN INDICATION
     Dosage: 35 MG, UNK
     Route: 048

REACTIONS (3)
  - Irritability [Unknown]
  - Unevaluable event [Unknown]
  - Anger [Unknown]
